FAERS Safety Report 16020334 (Version 1)
Quarter: 2019Q1

REPORT INFORMATION
  Report Type: Spontaneous
  Country: US (occurrence: US)
  Receive Date: 20190228
  Receipt Date: 20190228
  Transmission Date: 20190418
  Serious: Yes (Other)
  Sender: FDA-Public Use
  Company Number: US-ZYDUS-031744

PATIENT
  Sex: Male

DRUGS (1)
  1. SIROLIMUS. [Suspect]
     Active Substance: SIROLIMUS
     Indication: PTEN GENE MUTATION
     Route: 065
     Dates: end: 201801

REACTIONS (7)
  - Weight decreased [Unknown]
  - Vomiting [Unknown]
  - Fall [Unknown]
  - Nausea [Unknown]
  - Waist circumference increased [Unknown]
  - Drug ineffective for unapproved indication [Unknown]
  - Decreased appetite [Unknown]

NARRATIVE: CASE EVENT DATE: 201710
